FAERS Safety Report 17451116 (Version 1)
Quarter: 2020Q1

REPORT INFORMATION
  Report Type: Spontaneous
  Country: US (occurrence: US)
  Receive Date: 20200211
  Receipt Date: 20200211
  Transmission Date: 20200409
  Serious: No
  Sender: FDA-Public Use
  Company Number: None

PATIENT
  Age: 63 Year
  Sex: Male
  Weight: 64.3 kg

DRUGS (2)
  1. DOFETILIDE (DOFETILIDE 500MCG CAP) [Suspect]
     Active Substance: DOFETILIDE
     Indication: ATRIAL FIBRILLATION
     Route: 048
     Dates: start: 20190221, end: 20190224
  2. DOFETILIDE (DOFETILIDE 500MCG CAP) [Suspect]
     Active Substance: DOFETILIDE
     Indication: MITRAL VALVE REPLACEMENT
     Route: 048
     Dates: start: 20190221, end: 20190224

REACTIONS (2)
  - Electrocardiogram QT prolonged [None]
  - Hypotension [None]

NARRATIVE: CASE EVENT DATE: 20190223
